FAERS Safety Report 14181366 (Version 2)
Quarter: 2017Q4

REPORT INFORMATION
  Report Type: Report from Study
  Country: BR (occurrence: BR)
  Receive Date: 20171113
  Receipt Date: 20171213
  Transmission Date: 20180321
  Serious: Yes (Other)
  Sender: FDA-Public Use
  Company Number: PHHY2017BR166344

PATIENT
  Sex: Male
  Weight: 69 kg

DRUGS (1)
  1. DIOVAN HCT [Suspect]
     Active Substance: HYDROCHLOROTHIAZIDE\VALSARTAN
     Indication: HYPERTENSION
     Dosage: 1 DF (80 MG/UNK), QD
     Route: 065

REACTIONS (9)
  - Gastritis bacterial [Unknown]
  - Malaise [Unknown]
  - Weight decreased [Unknown]
  - Hypoacusis [Unknown]
  - Thyroid disorder [Unknown]
  - Ageusia [Not Recovered/Not Resolved]
  - Oropharyngeal pain [Unknown]
  - Throat cancer [Recovering/Resolving]
  - Nasopharyngitis [Unknown]

NARRATIVE: CASE EVENT DATE: 2016
